FAERS Safety Report 5746514-3 (Version None)
Quarter: 2008Q2

REPORT INFORMATION
  Report Type: 
  Country: None (occurrence: None)
  Receive Date: 20080522
  Receipt Date: 20080512
  Transmission Date: 20081010
  Serious: Yes (Hospitalization, Other)
  Sender: FDA-Public Use
  Company Number: GB-ABBOTT-08P-167-0451366-00

PATIENT
  Age: 56 Year
  Sex: Female

DRUGS (4)
  1. RITONAVIR [Suspect]
     Indication: HIV INFECTION
  2. CYCLOSPORINE [Suspect]
     Indication: IMMUNOSUPPRESSANT DRUG THERAPY
     Dosage: NOT REPORTED
  3. CYCLOSPORINE [Suspect]
     Dosage: REDUCED 25 MG EVERY THIRD DAY
  4. SAQUINAVIR [Suspect]
     Indication: HIV INFECTION

REACTIONS (2)
  - DRUG INTERACTION [None]
  - DRUG TOXICITY [None]
